FAERS Safety Report 5091523-3 (Version None)
Quarter: 2006Q3

REPORT INFORMATION
  Report Type: 
  Country: None (occurrence: None)
  Receive Date: 20060727
  Receipt Date: 20060407
  Transmission Date: 20061208
  Serious: Yes (Other)
  Sender: FDA-Public Use
  Company Number: 2006049867

PATIENT
  Age: 63 Year
  Sex: Female
  Weight: 62.5964 kg

DRUGS (16)
  1. LYRICA [Suspect]
     Indication: PHANTOM PAIN
     Dosage: 150 MG (75 MG,2 IN 1 D)
     Dates: start: 20060327
  2. MECLIZINE [Concomitant]
  3. DIAZEPAM [Concomitant]
  4. NITROGLYCERIN [Concomitant]
  5. MULTIVITAMIN [Concomitant]
  6. SYNTHROID [Concomitant]
  7. ALUPENT [Concomitant]
  8. PHENOBARBITAL TAB [Concomitant]
  9. LASIX [Concomitant]
  10. VASOTEC [Concomitant]
  11. RESTORIL [Concomitant]
  12. ATIVAN [Concomitant]
  13. ALL OTHER THERAPEUTIC PRODUCTS (ALL OTHER THERAPEUTIC PRODUCTS) [Concomitant]
  14. PROTONIX [Concomitant]
  15. RHINOCORT [Concomitant]
  16. VICODIN [Concomitant]

REACTIONS (1)
  - DRUG INEFFECTIVE [None]
